FAERS Safety Report 13891006 (Version 1)
Quarter: 2017Q3

REPORT INFORMATION
  Report Type: Spontaneous
  Country: US (occurrence: US)
  Receive Date: 20170822
  Receipt Date: 20170822
  Transmission Date: 20171127
  Serious: No
  Sender: FDA-Public Use
  Company Number: US-PFIZER INC-2017363114

PATIENT
  Age: 59 Year
  Sex: Male

DRUGS (2)
  1. DESIPRAMINE [Concomitant]
     Active Substance: DESIPRAMINE
     Indication: HEADACHE
     Dosage: UNK
  2. GABAPENTIN. [Suspect]
     Active Substance: GABAPENTIN
     Indication: HEADACHE
     Dosage: 600 MG, 4X/DAY

REACTIONS (1)
  - Product use in unapproved indication [Unknown]
